FAERS Safety Report 6193799-8 (Version None)
Quarter: 2009Q2

REPORT INFORMATION
  Report Type: 
  Country: None (occurrence: None)
  Receive Date: 20090518
  Receipt Date: 20090514
  Transmission Date: 20091009
  Serious: Yes (Other)
  Sender: FDA-Public Use
  Company Number: FR-BRISTOL-MYERS SQUIBB COMPANY-14596928

PATIENT
  Age: 72 Year
  Sex: Male

DRUGS (4)
  1. APROVEL FILM-COATED TABS 300 MG [Suspect]
     Route: 048
     Dates: start: 20010101, end: 20030725
  2. GLUCOPHAGE [Concomitant]
     Indication: DIABETES MELLITUS
     Dosage: 2 DF = 2 TABS. STRENGTH - 1000MG
     Dates: start: 20010101
  3. AMARYL [Concomitant]
     Indication: DIABETES MELLITUS
     Dosage: 1 DF = 1 TABS. 2 MG
     Dates: start: 20010101
  4. KARDEGIC [Concomitant]
     Dosage: 1 SACHET . STRENGTH=160MG
     Dates: start: 20010101

REACTIONS (1)
  - BREAST CANCER [None]
